FAERS Safety Report 24435065 (Version 1)
Quarter: 2024Q4

REPORT INFORMATION
  Report Type: Spontaneous
  Country: US (occurrence: US)
  Receive Date: 20241014
  Receipt Date: 20241014
  Transmission Date: 20250115
  Serious: Yes (Other)
  Sender: MERCK
  Company Number: US-009507513-2303USA007507

PATIENT
  Age: 84 Year
  Sex: Male

DRUGS (3)
  1. KEYTRUDA [Suspect]
     Active Substance: PEMBROLIZUMAB
     Indication: Metastatic neoplasm
     Dosage: 400 MILLIGRAM, EVERY 6 WEEKS
     Dates: start: 2022
  2. GRAMICIDIN\NEOMYCIN SULFATE\POLYMYXIN B SULFATE [Concomitant]
     Active Substance: GRAMICIDIN\NEOMYCIN SULFATE\POLYMYXIN B SULFATE
  3. COCONUT OIL [Concomitant]
     Active Substance: COCONUT OIL

REACTIONS (5)
  - Malignant neoplasm progression [Unknown]
  - Rash [Unknown]
  - Decreased appetite [Unknown]
  - Furuncle [Unknown]
  - Constipation [Unknown]

NARRATIVE: CASE EVENT DATE: 20230301
